FAERS Safety Report 7680453-6 (Version None)
Quarter: 2011Q3

REPORT INFORMATION
  Report Type: 
  Country: None (occurrence: None)
  Receive Date: 20110812
  Receipt Date: 20110811
  Transmission Date: 20111222
  Serious: Yes (Death, Hospitalization)
  Sender: FDA-Public Use
  Company Number: JP-EISAI INC-E2020-09576-CLI-JP

PATIENT
  Sex: Male

DRUGS (4)
  1. DIOVAN [Concomitant]
     Route: 048
     Dates: start: 20100522, end: 20110406
  2. AMLODIPINE [Concomitant]
     Route: 048
     Dates: start: 20110212, end: 20110406
  3. ARICEPT [Suspect]
     Route: 048
     Dates: start: 20110226, end: 20110406
  4. ARICEPT [Suspect]
     Indication: DEMENTIA ALZHEIMER'S TYPE
     Route: 048
     Dates: start: 20110212, end: 20110225

REACTIONS (4)
  - MULTI-ORGAN FAILURE [None]
  - DEHYDRATION [None]
  - HYPOTHERMIA [None]
  - VITAMIN B1 DEFICIENCY [None]
